FAERS Safety Report 6728337-1 (Version None)
Quarter: 2010Q2

REPORT INFORMATION
  Report Type: 
  Country: None (occurrence: None)
  Receive Date: 20100517
  Receipt Date: 20100507
  Transmission Date: 20101027
  Serious: Yes (Hospitalization)
  Sender: FDA-Public Use
  Company Number: AU-ABBOTT-10P-008-0643153-00

PATIENT
  Sex: Female

DRUGS (3)
  1. EPILIM TABLETS [Suspect]
     Indication: BIPOLAR DISORDER
     Route: 048
  2. EPILIM TABLETS [Suspect]
     Route: 048
     Dates: start: 20090401
  3. EPILIM TABLETS [Suspect]
     Route: 048

REACTIONS (8)
  - ALOPECIA [None]
  - DIARRHOEA [None]
  - DIZZINESS [None]
  - DYSPEPSIA [None]
  - NAUSEA [None]
  - OCULAR ICTERUS [None]
  - RASH [None]
  - SYNCOPE [None]
